FAERS Safety Report 5299500-4 (Version None)
Quarter: 2007Q2

REPORT INFORMATION
  Report Type: 
  Country: None (occurrence: None)
  Receive Date: 20070417
  Receipt Date: 20070312
  Transmission Date: 20071010
  Serious: Yes (Other)
  Sender: FDA-Public Use
  Company Number: US-SANOFI-SYNTHELABO-A03200702310

PATIENT
  Sex: Male

DRUGS (1)
  1. AMBIEN [Suspect]
     Indication: INSOMNIA
     Route: 048
     Dates: start: 19960101, end: 20060306

REACTIONS (13)
  - AMNESIA [None]
  - CONCUSSION [None]
  - DIZZINESS [None]
  - EATING DISORDER [None]
  - FALL [None]
  - HAEMORRHAGE [None]
  - HAND FRACTURE [None]
  - MYALGIA [None]
  - ROAD TRAFFIC ACCIDENT [None]
  - SLEEP WALKING [None]
  - VERTEBRAL INJURY [None]
  - VISUAL DISTURBANCE [None]
  - WEIGHT INCREASED [None]
